FAERS Safety Report 5810872-1 (Version None)
Quarter: 2008Q3

REPORT INFORMATION
  Report Type: 
  Country: None (occurrence: None)
  Receive Date: 20080715
  Receipt Date: 20080707
  Transmission Date: 20090109
  Serious: Yes (Hospitalization, Other)
  Sender: FDA-Public Use
  Company Number: JP-ABBOTT-04P-087-0257013-00

PATIENT
  Sex: Male
  Weight: 53.5 kg

DRUGS (29)
  1. KALETRA [Suspect]
     Indication: HIV INFECTION
     Route: 048
     Dates: start: 20030108, end: 20061226
  2. KALETRA [Suspect]
     Indication: HIV INFECTION
     Dosage: 4 TAB DAILY, 800/400 MG DAILY
     Route: 048
     Dates: start: 20061227, end: 20070331
  3. LAMIVUDINE [Suspect]
     Indication: HIV INFECTION
     Route: 048
     Dates: start: 20030108, end: 20050302
  4. STAVUDINE [Suspect]
     Indication: HIV INFECTION
     Route: 048
     Dates: start: 20030108, end: 20040831
  5. INDOMETHACIN [Suspect]
     Indication: FOLLICULITIS
     Route: 048
     Dates: start: 20021225, end: 20030122
  6. INDOMETHACIN [Suspect]
     Route: 061
     Dates: start: 20021225, end: 20030121
  7. ATAZANAVIR [Suspect]
     Indication: HIV INFECTION
     Route: 048
     Dates: start: 20070314
  8. BACTRIM [Concomitant]
     Indication: ANTIFUNGAL PROPHYLAXIS
     Route: 048
     Dates: start: 20021106, end: 20021116
  9. BACTRIM [Concomitant]
     Route: 048
     Dates: start: 20030628, end: 20040630
  10. FLUCONAZOLE [Concomitant]
     Indication: CANDIDIASIS
     Route: 048
     Dates: start: 20021111, end: 20021115
  11. DOXORUBICIN HYDROCHLORIDE [Concomitant]
     Indication: KAPOSI'S SARCOMA
     Route: 050
     Dates: start: 20021119, end: 20030312
  12. ONDANSETRON [Concomitant]
     Indication: PROPHYLAXIS
     Route: 042
     Dates: start: 20021119, end: 20030312
  13. PENTAMIDINE ISETHIONATE [Concomitant]
     Indication: ANTIFUNGAL PROPHYLAXIS
     Route: 042
     Dates: start: 20021128, end: 20021128
  14. PENTAMIDINE ISETHIONATE [Concomitant]
     Route: 055
     Dates: start: 20021225, end: 20030514
  15. CLOBETASOL PROPIONATE [Concomitant]
     Indication: FOLLICULITIS
     Route: 061
     Dates: start: 20030122, end: 20030218
  16. AZITHROMYCIN [Concomitant]
     Indication: ANTIBIOTIC PROPHYLAXIS
     Route: 048
     Dates: start: 20030129, end: 20040114
  17. DIFLUCORTOLONE VALERATE [Concomitant]
     Indication: FOLLICULITIS
     Route: 061
     Dates: start: 20030219, end: 20030401
  18. CETIRIZINE HYDROCHLORIDE [Concomitant]
     Indication: SEASONAL ALLERGY
     Route: 048
     Dates: start: 20040303, end: 20040530
  19. CETIRIZINE HYDROCHLORIDE [Concomitant]
     Route: 048
     Dates: start: 20050302, end: 20050501
  20. CROMOLYN SODIUM [Concomitant]
     Indication: SEASONAL ALLERGY
     Dosage: EED
     Dates: start: 20040303, end: 20040530
  21. CROMOLYN SODIUM [Concomitant]
     Dosage: NDR
     Dates: start: 20050302, end: 20050501
  22. CROMOLYN SODIUM [Concomitant]
     Dates: start: 20050302
  23. RETINOL [Concomitant]
     Indication: FOLLICULITIS
     Route: 061
     Dates: start: 20030402, end: 20030531
  24. DIFLUPREDNATE [Concomitant]
     Indication: FOLLICULITIS
     Route: 061
     Dates: start: 20030402, end: 20030531
  25. LOPERAMIDE HCL [Concomitant]
     Indication: DIARRHOEA
     Route: 048
     Dates: start: 20040401
  26. ABACAVIR [Concomitant]
     Indication: HIV INFECTION
     Route: 048
     Dates: start: 20040901, end: 20050104
  27. ABACAVIR [Concomitant]
     Route: 048
     Dates: start: 20050105, end: 20050302
  28. LAMIVUDINE/ABACAVIR [Concomitant]
     Indication: HIV INFECTION
     Route: 048
     Dates: start: 20050303
  29. NORVIR [Concomitant]
     Indication: HIV INFECTION
     Route: 048
     Dates: start: 20070314

REACTIONS (12)
  - BLOOD BILIRUBIN INCREASED [None]
  - BLOOD LACTATE DEHYDROGENASE INCREASED [None]
  - BLOOD URIC ACID INCREASED [None]
  - BRADYCARDIA [None]
  - CELLULITIS [None]
  - DIARRHOEA [None]
  - FACIAL WASTING [None]
  - MELAENA [None]
  - NAUSEA [None]
  - OESOPHAGEAL CANDIDIASIS [None]
  - ORAL CANDIDIASIS [None]
  - PAIN IN JAW [None]
